FAERS Safety Report 19698539 (Version 1)
Quarter: 2021Q3

REPORT INFORMATION
  Report Type: Spontaneous
  Country: US (occurrence: US)
  Receive Date: 20210813
  Receipt Date: 20210813
  Transmission Date: 20211014
  Serious: No
  Sender: FDA-Public Use
  Company Number: US-CHIESI-2021CHF00299

PATIENT
  Age: 56 Year
  Sex: Male
  Weight: 110 kg

DRUGS (10)
  1. NICARDIPINE [Concomitant]
     Active Substance: NICARDIPINE
     Dosage: 5 MILLIGRAM, QH
     Dates: start: 20210120
  2. CLEVIPREX [Suspect]
     Active Substance: CLEVIDIPINE
     Indication: HAEMORRHAGE INTRACRANIAL
     Dosage: 1 MILLIGRAM, QH
     Route: 042
     Dates: start: 20210120, end: 20210120
  3. CLEVIPREX [Suspect]
     Active Substance: CLEVIDIPINE
     Indication: HYPERTENSIVE EMERGENCY
     Dosage: 2 MILLIGRAM, QH
     Route: 042
     Dates: start: 20210120
  4. CLEVIPREX [Suspect]
     Active Substance: CLEVIDIPINE
     Indication: OFF LABEL USE
     Dosage: 4 MILLIGRAM, QH
     Dates: start: 20210120
  5. NICARDIPINE [Concomitant]
     Active Substance: NICARDIPINE
     Indication: PRODUCT USED FOR UNKNOWN INDICATION
     Dosage: 2.5 MILLIGRAM, QH
     Dates: start: 20210120
  6. CLEVIPREX [Suspect]
     Active Substance: CLEVIDIPINE
     Dosage: 12 MILLIGRAM, QH
     Dates: start: 20210120
  7. CLEVIPREX [Suspect]
     Active Substance: CLEVIDIPINE
     Dosage: 8 MILLIGRAM, QH
     Dates: start: 20210120
  8. CLEVIPREX [Suspect]
     Active Substance: CLEVIDIPINE
     Dosage: 10 MILLIGRAM, QH
     Dates: start: 20210120
  9. CLEVIPREX [Suspect]
     Active Substance: CLEVIDIPINE
     Dosage: UNK
     Dates: start: 20210120
  10. LABETALOL [Concomitant]
     Active Substance: LABETALOL\LABETALOL HYDROCHLORIDE
     Indication: PRODUCT USED FOR UNKNOWN INDICATION
     Dosage: 20 MILLIGRAM, QD
     Route: 042
     Dates: start: 20210120

REACTIONS (3)
  - Drug ineffective [Recovered/Resolved]
  - Product complaint [Recovered/Resolved]
  - Off label use [Recovered/Resolved]

NARRATIVE: CASE EVENT DATE: 20210120
